FAERS Safety Report 7237299-2 (Version None)
Quarter: 2011Q1

REPORT INFORMATION
  Report Type: 
  Country: None (occurrence: None)
  Receive Date: 20110121
  Receipt Date: 20110107
  Transmission Date: 20110831
  Serious: Yes (Other)
  Sender: FDA-Public Use
  Company Number: IL-TEVA-263643ISR

PATIENT
  Age: 14 Year
  Sex: Male

DRUGS (5)
  1. DOXORUBICIN [Suspect]
     Dates: start: 20060801
  2. CISPLATIN [Suspect]
     Dates: start: 20060801, end: 20070601
  3. METHOTREXATE [Suspect]
     Dates: start: 20060801, end: 20070601
  4. ETOPOSIDE [Suspect]
     Dates: start: 20060801, end: 20070601
  5. IFOSFAMIDE [Suspect]
     Dates: end: 20070601

REACTIONS (1)
  - ACUTE MYELOID LEUKAEMIA [None]
